FAERS Safety Report 13493715 (Version 1)
Quarter: 2017Q2

REPORT INFORMATION
  Report Type: Spontaneous
  Country: US (occurrence: US)
  Receive Date: 20170427
  Receipt Date: 20170427
  Transmission Date: 20170830
  Serious: No
  Sender: FDA-Public Use
  Company Number: US-ROCHE-1327749

PATIENT
  Age: 51 Year
  Sex: Female
  Weight: 66.28 kg

DRUGS (1)
  1. ERIVEDGE [Suspect]
     Active Substance: VISMODEGIB
     Indication: BASAL CELL CARCINOMA
     Route: 048
     Dates: start: 20130619, end: 201309

REACTIONS (3)
  - Mood swings [Unknown]
  - Muscle spasms [Unknown]
  - Ageusia [Unknown]

NARRATIVE: CASE EVENT DATE: 201308
